FAERS Safety Report 23144552 (Version 1)
Quarter: 2023Q4

REPORT INFORMATION
  Report Type: Spontaneous
  Country: GB (occurrence: GB)
  Receive Date: 20231103
  Receipt Date: 20231103
  Transmission Date: 20240110
  Serious: Yes (Other)
  Sender: FDA-Public Use
  Company Number: GB-SUN PHARMACEUTICAL INDUSTRIES LTD-2023RR-416410

PATIENT
  Age: 72 Year
  Sex: Female
  Weight: 75 kg

DRUGS (11)
  1. ROSUVASTATIN [Suspect]
     Active Substance: ROSUVASTATIN
     Indication: Product used for unknown indication
     Dosage: 40 MILLIGRAM, 1 DOSE
     Route: 065
     Dates: start: 20230630
  2. ASPIRIN [Concomitant]
     Active Substance: ASPIRIN
     Indication: Product used for unknown indication
     Dosage: 1 DOSAGE FORM, 1 DOSE
     Route: 065
     Dates: start: 20230515
  3. BISOPROLOL [Concomitant]
     Active Substance: BISOPROLOL\BISOPROLOL FUMARATE
     Indication: Product used for unknown indication
     Dosage: 1 DOSAGE FORM, 1 DOSE
     Route: 065
     Dates: start: 20230515
  4. FLUTICASONE PROPIONATE [Concomitant]
     Active Substance: FLUTICASONE PROPIONATE
     Indication: Product used for unknown indication
     Dosage: 2 DOSAGE FORM, 1 DOSE
     Route: 055
     Dates: start: 20220721
  5. NITROGLYCERIN [Concomitant]
     Active Substance: NITROGLYCERIN
     Indication: Chest pain
     Dosage: 1 DOSAGE FORM
     Route: 055
     Dates: start: 20230515
  6. LANSOPRAZOLE [Concomitant]
     Active Substance: LANSOPRAZOLE
     Indication: Product used for unknown indication
     Dosage: 1 DOSAGE FORM, 1 DOSE
     Route: 065
     Dates: start: 20230515
  7. ISOSORBIDE MONONITRATE [Concomitant]
     Active Substance: ISOSORBIDE MONONITRATE
     Indication: Product used for unknown indication
     Dosage: 30 MILLIGRAM, 1 DOSE
     Route: 065
     Dates: start: 20230515
  8. NOVO NORDISK PHARMS NOVOFEM [Concomitant]
     Indication: Product used for unknown indication
     Dosage: 1 DOSAGE FORM, 1 DOSE
     Route: 065
     Dates: start: 20220721
  9. RAMIPRIL [Concomitant]
     Active Substance: RAMIPRIL
     Indication: Blood pressure measurement
     Dosage: 1 DOSAGE FORM, 1 DOSE
     Route: 065
     Dates: start: 20220721
  10. SIMVASTATIN [Concomitant]
     Active Substance: SIMVASTATIN
     Indication: Blood cholesterol
     Dosage: 1 DOSAGE FORM, 1 DOSE
     Route: 065
     Dates: start: 20230802
  11. TICAGRELOR [Concomitant]
     Active Substance: TICAGRELOR
     Indication: Product used for unknown indication
     Dosage: 1 DOSAGE FORM, 2 DOSE
     Route: 065
     Dates: start: 20230515

REACTIONS (1)
  - Palpitations [Recovered/Resolved]
